FAERS Safety Report 13106551 (Version 2)
Quarter: 2017Q1

REPORT INFORMATION
  Report Type: Report from Study
  Country: US (occurrence: US)
  Receive Date: 20170111
  Receipt Date: 20170302
  Transmission Date: 20170428
  Serious: Yes (Other)
  Sender: FDA-Public Use
  Company Number: US-ACTELION-A-US2017-147921

PATIENT
  Age: 57 Year
  Sex: Female

DRUGS (1)
  1. OPSUMIT [Suspect]
     Active Substance: MACITENTAN
     Indication: PULMONARY ARTERIAL HYPERTENSION
     Dosage: UNK
     Route: 048
     Dates: start: 20151230

REACTIONS (4)
  - Fatigue [Recovered/Resolved]
  - Transaminases increased [Recovered/Resolved]
  - Vomiting [Recovered/Resolved]
  - Hepatitis alcoholic [Recovered/Resolved]

NARRATIVE: CASE EVENT DATE: 20161221
